FAERS Safety Report 5641823-0 (Version None)
Quarter: 2008Q1

REPORT INFORMATION
  Report Type: 
  Country: None (occurrence: None)
  Receive Date: 20080227
  Receipt Date: 20080215
  Transmission Date: 20080703
  Serious: Yes (Other)
  Sender: FDA-Public Use
  Company Number: US-PFIZER INC-2008015382

PATIENT
  Sex: Male
  Weight: 97.272 kg

DRUGS (17)
  1. LYRICA [Suspect]
     Indication: OSTEOARTHRITIS
     Dates: start: 20080204, end: 20080207
  2. LYRICA [Suspect]
     Indication: RHEUMATOID ARTHRITIS
  3. LYRICA [Suspect]
     Indication: FIBROMYALGIA
  4. LYRICA [Suspect]
     Indication: OSTEOPOROSIS
  5. LYRICA [Suspect]
     Indication: CLUSTER HEADACHE
  6. PRAZOSIN HCL [Concomitant]
  7. VICODIN [Concomitant]
  8. DEPAKOTE [Concomitant]
  9. ALL OTHER THERAPEUTIC PRODUCTS [Concomitant]
  10. COMBIVENT [Concomitant]
  11. LISINOPRIL [Concomitant]
  12. METOPROLOL TARTRATE [Concomitant]
  13. VERAPAMIL [Concomitant]
  14. SIMVASTATIN [Concomitant]
  15. CLONIDINE [Concomitant]
  16. PROTONIX [Concomitant]
  17. NASACORT AQ [Concomitant]

REACTIONS (19)
  - ABDOMINAL PAIN UPPER [None]
  - ARTHRALGIA [None]
  - BACK PAIN [None]
  - BALANCE DISORDER [None]
  - CLUSTER HEADACHE [None]
  - CONSTIPATION [None]
  - DRUG INEFFECTIVE [None]
  - DYSPNOEA [None]
  - GAIT DISTURBANCE [None]
  - GASTROINTESTINAL DISORDER [None]
  - GASTROINTESTINAL OBSTRUCTION [None]
  - HYPERTENSION [None]
  - HYPOAESTHESIA [None]
  - LETHARGY [None]
  - MUSCULOSKELETAL PAIN [None]
  - PHARYNGEAL OEDEMA [None]
  - PYREXIA [None]
  - RENAL PAIN [None]
  - VOMITING [None]
